FAERS Safety Report 20766697 (Version 1)
Quarter: 2022Q2

REPORT INFORMATION
  Report Type: Spontaneous
  Country: GR (occurrence: GR)
  Receive Date: 20220429
  Receipt Date: 20220429
  Transmission Date: 20220721
  Serious: Yes (Hospitalization, Other)
  Sender: FDA-Public Use
  Company Number: GR-SUN PHARMACEUTICAL INDUSTRIES LTD-2020R1-234392

PATIENT
  Age: 44 Year
  Sex: Female

DRUGS (4)
  1. CAPECITABINE [Interacting]
     Active Substance: CAPECITABINE
     Indication: Chemotherapy
     Dosage: 1250 MILLIGRAM/SQ. METER, DAILY
     Route: 065
  2. CAPECITABINE [Interacting]
     Active Substance: CAPECITABINE
     Dosage: UNK
     Route: 065
  3. BRIVUDINE [Interacting]
     Active Substance: BRIVUDINE
     Indication: Herpes zoster
     Dosage: 125 MILLIGRAM, DAILY (DAYS 8-14, OF THE SIXTH CYCLE)
     Route: 065
  4. BEVACIZUMAB [Concomitant]
     Active Substance: BEVACIZUMAB
     Indication: Chemotherapy
     Dosage: UNK (7.5 MG/KG EVERY 21 DAYS)
     Route: 065

REACTIONS (9)
  - Drug interaction [Unknown]
  - Stomatitis [Recovered/Resolved]
  - Neutropenia [Recovered/Resolved]
  - Anaemia [Recovered/Resolved]
  - Thrombocytopenia [Recovered/Resolved]
  - Rash maculo-papular [Recovered/Resolved]
  - Diarrhoea [Recovered/Resolved]
  - Oesophagitis [Recovered/Resolved]
  - Alopecia [Recovered/Resolved]
